FAERS Safety Report 20351227 (Version 2)
Quarter: 2022Q2

REPORT INFORMATION
  Report Type: Spontaneous
  Country: US (occurrence: US)
  Receive Date: 20220119
  Receipt Date: 20220512
  Transmission Date: 20220720
  Serious: No
  Sender: FDA-Public Use
  Company Number: US-PFIZER INC-202101410453

PATIENT
  Age: 69 Year
  Sex: Female

DRUGS (21)
  1. XELJANZ XR [Suspect]
     Active Substance: TOFACITINIB CITRATE
     Dosage: 11 MG, DAILY
     Route: 048
  2. DILTIAZEM [Concomitant]
     Active Substance: DILTIAZEM
  3. XARELTO [Concomitant]
     Active Substance: RIVAROXABAN
  4. DIGOXIN [Concomitant]
     Active Substance: DIGOXIN
  5. ZOLMITRIPTAN [Concomitant]
     Active Substance: ZOLMITRIPTAN
  6. PREDNISONE [Concomitant]
     Active Substance: PREDNISONE
  7. OMEPRAZOLE [Concomitant]
     Active Substance: OMEPRAZOLE
  8. DULOXETINE [Concomitant]
     Active Substance: DULOXETINE
  9. ATORVASTATIN [Concomitant]
     Active Substance: ATORVASTATIN
  10. PANCREAZE [Concomitant]
     Active Substance: PANCRELIPASE AMYLASE\PANCRELIPASE LIPASE\PANCRELIPASE PROTEASE
  11. GABAPENTIN [Concomitant]
     Active Substance: GABAPENTIN
  12. FOLIC ACID [Concomitant]
     Active Substance: FOLIC ACID
  13. LINZESS [Concomitant]
     Active Substance: LINACLOTIDE
  14. LEVOTHYROXINE [Concomitant]
     Active Substance: LEVOTHYROXINE
  15. MODAFINIL [Concomitant]
     Active Substance: MODAFINIL
  16. CIPROFLOXACIN [Concomitant]
     Active Substance: CIPROFLOXACIN
  17. NITROFURANTOIN [Concomitant]
     Active Substance: NITROFURANTOIN
  18. METHYLPREDNISOLONE [Concomitant]
     Active Substance: METHYLPREDNISOLONE
  19. ACYCLOVIR [Concomitant]
     Active Substance: ACYCLOVIR
  20. LEUCOVORIN [Concomitant]
     Active Substance: LEUCOVORIN
  21. TRAMADOL [Concomitant]
     Active Substance: TRAMADOL

REACTIONS (2)
  - Drug ineffective [Unknown]
  - Liver function test abnormal [Unknown]
